FAERS Safety Report 6507088-2 (Version None)
Quarter: 2009Q4

REPORT INFORMATION
  Report Type: 
  Country: None (occurrence: None)
  Receive Date: 20091221
  Receipt Date: 20091209
  Transmission Date: 20100525
  Serious: Yes (Other)
  Sender: FDA-Public Use
  Company Number: PHHY2009FR56171

PATIENT
  Age: 86 Year
  Sex: Male

DRUGS (1)
  1. RASILEZ [Suspect]
     Dosage: 150 MG, QD
     Route: 048
     Dates: start: 20091212, end: 20091214

REACTIONS (5)
  - DECREASED APPETITE [None]
  - DISTURBANCE IN ATTENTION [None]
  - NAUSEA [None]
  - RENAL FAILURE [None]
  - RENAL IMPAIRMENT [None]
